FAERS Safety Report 20764859 (Version 1)
Quarter: 2022Q2

REPORT INFORMATION
  Report Type: Spontaneous
  Country: US (occurrence: US)
  Receive Date: 20220428
  Receipt Date: 20220428
  Transmission Date: 20220720
  Serious: No
  Sender: FDA-Public Use
  Company Number: US-SANOFI-01067219

PATIENT
  Age: 71 Year
  Sex: Female

DRUGS (2)
  1. LANTUS SOLOSTAR [Suspect]
     Active Substance: INSULIN GLARGINE
     Indication: Diabetes mellitus
     Dosage: 24 U, BID
  2. NOVOLOG [Concomitant]
     Active Substance: INSULIN ASPART
     Dosage: 10 U, TID

REACTIONS (2)
  - Inappropriate schedule of product administration [Unknown]
  - Wrong technique in device usage process [Unknown]
